FAERS Safety Report 6986639-8 (Version None)
Quarter: 2010Q3

REPORT INFORMATION
  Report Type: 
  Country: None (occurrence: None)
  Receive Date: 20100915
  Receipt Date: 20090722
  Transmission Date: 20110219
  Serious: No
  Sender: FDA-Public Use
  Company Number: US-WYE-H10266209

PATIENT
  Sex: Female
  Weight: 131.66 kg

DRUGS (8)
  1. PRISTIQ [Suspect]
     Indication: DEPRESSION
     Route: 048
     Dates: start: 20081101
  2. ACTOS [Concomitant]
  3. HYDROXYCHLOROQUINE [Concomitant]
  4. VYTORIN [Concomitant]
  5. LISINOPRIL [Concomitant]
  6. HYDROCHLOROTHIAZIDE [Concomitant]
  7. PRILOSEC [Concomitant]
  8. METFORMIN [Concomitant]

REACTIONS (1)
  - BLOOD CHROMOGRANIN A INCREASED [None]
